FAERS Safety Report 13966124 (Version 1)
Quarter: 2017Q3

REPORT INFORMATION
  Report Type: Spontaneous
  Country: US (occurrence: US)
  Receive Date: 20170913
  Receipt Date: 20170913
  Transmission Date: 20171128
  Serious: Yes (Other)
  Sender: FDA-Public Use
  Company Number: US-SA-2017SA143368

PATIENT

DRUGS (1)
  1. NASACORT ALLERGY 24HR [Suspect]
     Active Substance: TRIAMCINOLONE ACETONIDE
     Dosage: 2 PUFFS IN EACH NOSTRIL DOSE:4 PUFF(S)
     Route: 045

REACTIONS (7)
  - Ageusia [Unknown]
  - Throat irritation [Unknown]
  - Nasal congestion [Unknown]
  - Dysphagia [Unknown]
  - Lacrimation increased [Unknown]
  - Product quality issue [Unknown]
  - Anosmia [Unknown]
